FAERS Safety Report 10922699 (Version 1)
Quarter: 2015Q1

REPORT INFORMATION
  Report Type: Spontaneous
  Country: IN (occurrence: IN)
  Receive Date: 20150317
  Receipt Date: 20150317
  Transmission Date: 20150721
  Serious: Yes (Hospitalization, Other)
  Sender: FDA-Public Use
  Company Number: IN-GLAXOSMITHKLINE-IN2015GSK034017

PATIENT
  Age: 19 Year
  Sex: Male

DRUGS (12)
  1. LITHIUM [Suspect]
     Active Substance: LITHIUM CARBONATE
     Indication: DELUSION
  2. OLANZAPINE. [Suspect]
     Active Substance: OLANZAPINE
     Indication: HALLUCINATION
  3. ONDANSETRON [Suspect]
     Active Substance: ONDANSETRON
     Indication: DELUSION
  4. LITHIUM [Suspect]
     Active Substance: LITHIUM CARBONATE
     Indication: HALLUCINATION
  5. RISPERIDONE. [Suspect]
     Active Substance: RISPERIDONE
     Indication: DELUSION
  6. ONDANSETRON [Suspect]
     Active Substance: ONDANSETRON
     Indication: HALLUCINATION
     Dosage: UNK
  7. CLONAZEPAM. [Suspect]
     Active Substance: CLONAZEPAM
     Indication: HALLUCINATION
     Dosage: UNK
  8. VALPROATE [Suspect]
     Active Substance: VALPROATE SODIUM
     Indication: HALLUCINATION
     Dosage: UNK
  9. CLONAZEPAM. [Suspect]
     Active Substance: CLONAZEPAM
     Indication: DELUSION
  10. OLANZAPINE. [Suspect]
     Active Substance: OLANZAPINE
     Indication: DELUSION
  11. RISPERIDONE. [Suspect]
     Active Substance: RISPERIDONE
     Indication: HALLUCINATION
     Dosage: UNK
  12. VALPROATE [Suspect]
     Active Substance: VALPROATE SODIUM
     Indication: DELUSION

REACTIONS (27)
  - Red blood cell sedimentation rate increased [Recovered/Resolved]
  - Blood calcium decreased [Recovered/Resolved]
  - Depressed level of consciousness [Recovered/Resolved]
  - Unresponsive to stimuli [Recovered/Resolved]
  - Tachycardia [Recovered/Resolved]
  - Tachypnoea [Recovered/Resolved]
  - White blood cell count increased [Unknown]
  - Neuroleptic malignant syndrome [Recovered/Resolved]
  - Agitation [Recovered/Resolved]
  - Diarrhoea [Recovered/Resolved]
  - Immobile [Recovered/Resolved]
  - Muscle rigidity [Recovered/Resolved]
  - Aggression [Recovered/Resolved]
  - C-reactive protein increased [Recovered/Resolved]
  - Hyperhidrosis [Recovered/Resolved]
  - Hyperreflexia [Recovered/Resolved]
  - Clonus [Recovered/Resolved]
  - Blood iron decreased [Recovered/Resolved]
  - Serotonin syndrome [Recovered/Resolved]
  - Gastrointestinal sounds abnormal [Recovered/Resolved]
  - Transaminases increased [Recovered/Resolved]
  - Pyrexia [Recovered/Resolved]
  - Chills [Recovered/Resolved]
  - Akinesia [Recovered/Resolved]
  - Tetany [Recovered/Resolved]
  - Blood creatine phosphokinase increased [Recovered/Resolved]
  - Hypophagia [Recovered/Resolved]
